FAERS Safety Report 17702815 (Version 1)
Quarter: 2020Q2

REPORT INFORMATION
  Report Type: Spontaneous
  Country: FR (occurrence: FR)
  Receive Date: 20200423
  Receipt Date: 20200423
  Transmission Date: 20200714
  Serious: No
  Sender: FDA-Public Use
  Company Number: FR-JAZZ-2020-FR-002967

PATIENT

DRUGS (2)
  1. XYREM [Suspect]
     Active Substance: SODIUM OXYBATE
     Indication: PRODUCT USED FOR UNKNOWN INDICATION
     Dosage: 4.5 GRAM DAILY DOSE
     Route: 048
  2. SEROPLEX [Concomitant]
     Active Substance: ESCITALOPRAM OXALATE

REACTIONS (4)
  - Tachycardia [Unknown]
  - Balance disorder [Unknown]
  - Vision blurred [Unknown]
  - Dizziness [Unknown]
